FAERS Safety Report 4652720-1 (Version None)
Quarter: 2005Q2

REPORT INFORMATION
  Report Type: 
  Country: None (occurrence: None)
  Receive Date: 20050408
  Receipt Date: 20050218
  Transmission Date: 20051028
  Serious: No
  Sender: FDA-Public Use
  Company Number: 230219K04USA

PATIENT
  Age: 40 Year
  Sex: Female

DRUGS (1)
  1. REBIF [Suspect]
     Indication: MULTIPLE SCLEROSIS
     Dates: start: 20030808

REACTIONS (3)
  - ENDOMETRIAL HYPERTROPHY [None]
  - MENSTRUATION IRREGULAR [None]
  - OVARIAN CYST [None]
